FAERS Safety Report 18122568 (Version 1)
Quarter: 2020Q3

REPORT INFORMATION
  Report Type: Spontaneous
  Country: US (occurrence: US)
  Receive Date: 20200806
  Receipt Date: 20200806
  Transmission Date: 20201103
  Serious: Yes (Other)
  Sender: FDA-Public Use
  Company Number: None

PATIENT
  Age: 76 Year
  Sex: Female
  Weight: 92.5 kg

DRUGS (14)
  1. CEFTRIAXONE. [Concomitant]
     Active Substance: CEFTRIAXONE
     Dates: start: 20200720, end: 20200729
  2. DOXYCYCLINE. [Concomitant]
     Active Substance: DOXYCYCLINE
     Dates: start: 20200723, end: 20200728
  3. NAPROXEN. [Concomitant]
     Active Substance: NAPROXEN
     Dates: start: 20200729, end: 20200802
  4. AMIODARONE [Concomitant]
     Active Substance: AMIODARONE
     Dates: start: 20200727, end: 20200729
  5. WARFARIN [Suspect]
     Active Substance: WARFARIN
     Indication: PULMONARY EMBOLISM
     Route: 048
     Dates: start: 20200721, end: 20200722
  6. FLUCONAZOLE. [Concomitant]
     Active Substance: FLUCONAZOLE
     Dates: start: 20200720, end: 20200722
  7. ACETAMINOPHEN. [Concomitant]
     Active Substance: ACETAMINOPHEN
     Dates: start: 20200720, end: 20200801
  8. ATORVASTATIN [Concomitant]
     Active Substance: ATORVASTATIN
     Dates: start: 20200720, end: 20200802
  9. SEPTRA IV [Concomitant]
     Dates: start: 20200720, end: 20200721
  10. REMDESIVIR. [Suspect]
     Active Substance: REMDESIVIR
     Indication: COVID-19
     Route: 041
     Dates: start: 20200727, end: 20200731
  11. WARFARIN [Suspect]
     Active Substance: WARFARIN
     Indication: DEEP VEIN THROMBOSIS
     Route: 048
     Dates: start: 20200721, end: 20200722
  12. FLUOXETINE [Concomitant]
     Active Substance: FLUOXETINE HYDROCHLORIDE
     Dates: start: 20200720, end: 20200802
  13. TRAZODONE [Concomitant]
     Active Substance: TRAZODONE HYDROCHLORIDE
     Dates: start: 20200720, end: 20200802
  14. ENOXAPARIN [Concomitant]
     Active Substance: ENOXAPARIN
     Dates: start: 20200728, end: 20200729

REACTIONS (5)
  - Alanine aminotransferase increased [None]
  - Blood alkaline phosphatase increased [None]
  - International normalised ratio increased [None]
  - Muscular weakness [None]
  - Liver function test increased [None]

NARRATIVE: CASE EVENT DATE: 20200801
